FAERS Safety Report 19800879 (Version 2)
Quarter: 2021Q3

REPORT INFORMATION
  Report Type: Report from Study
  Country: None (occurrence: CO)
  Receive Date: 20210908
  Receipt Date: 20210923
  Transmission Date: 20211014
  Serious: Yes (Other)
  Sender: FDA-Public Use
  Company Number: CO-ABBVIE-21K-036-4070084-00

PATIENT
  Age: 88 Year
  Sex: Male
  Weight: 59 kg

DRUGS (1)
  1. IMBRUVICA [Suspect]
     Active Substance: IBRUTINIB
     Indication: CHRONIC LYMPHOCYTIC LEUKAEMIA
     Route: 048
     Dates: start: 20201201, end: 20210817

REACTIONS (2)
  - Muscle spasms [Not Recovered/Not Resolved]
  - Cataract operation [Recovering/Resolving]

NARRATIVE: CASE EVENT DATE: 20210829
